FAERS Safety Report 13931160 (Version 3)
Quarter: 2017Q4

REPORT INFORMATION
  Report Type: Spontaneous
  Country: US (occurrence: US)
  Receive Date: 20170902
  Receipt Date: 20171027
  Transmission Date: 20180320
  Serious: Yes (Death, Hospitalization)
  Sender: FDA-Public Use
  Company Number: US-B.I. PHARMACEUTICALS,INC./RIDGEFIELD-2017-BI-047767

PATIENT
  Age: 59 Year
  Sex: Male

DRUGS (1)
  1. SPIRIVA [Suspect]
     Active Substance: TIOTROPIUM BROMIDE MONOHYDRATE
     Indication: CHRONIC OBSTRUCTIVE PULMONARY DISEASE
     Route: 055
     Dates: start: 2015

REACTIONS (10)
  - Atrioventricular block [Unknown]
  - Fluid retention [Unknown]
  - Asthenia [Unknown]
  - Pneumonia [Unknown]
  - Chest pain [Unknown]
  - Scrotal swelling [Unknown]
  - Acute kidney injury [Fatal]
  - Asbestosis [Unknown]
  - Myocardial infarction [Fatal]
  - Weaning failure [Unknown]

NARRATIVE: CASE EVENT DATE: 201706
